FAERS Safety Report 7070456-7 (Version None)
Quarter: 2010Q4

REPORT INFORMATION
  Report Type: 
  Country: None (occurrence: None)
  Receive Date: 20101028
  Receipt Date: 20101028
  Transmission Date: 20110411
  Serious: Yes (Other)
  Sender: FDA-Public Use
  Company Number: None

PATIENT
  Sex: Female
  Weight: 65.9 kg

DRUGS (4)
  1. CIPROFLOXACIN HCL [Suspect]
     Indication: CYSTITIS
     Dosage: 500 MG 2 X DAILY ORAL
     Route: 048
     Dates: start: 20100823, end: 20100826
  2. NADOLOL [Concomitant]
  3. MAXZIDE [Concomitant]
  4. DEXILANT [Concomitant]

REACTIONS (4)
  - GOUT [None]
  - PAIN [None]
  - SWELLING [None]
  - TENDONITIS [None]
